FAERS Safety Report 4336739-6 (Version None)
Quarter: 2004Q2

REPORT INFORMATION
  Report Type: 
  Country: None (occurrence: None)
  Receive Date: 20040408
  Receipt Date: 20040329
  Transmission Date: 20050107
  Serious: Yes (Death, Other)
  Sender: FDA-Public Use
  Company Number: US-JNJFOC-20031001675

PATIENT
  Age: 78 Year
  Sex: Male

DRUGS (15)
  1. REMICADE [Suspect]
     Indication: CROHN'S DISEASE
     Dosage: 3 MG/KG, 1 IN 1 TOTAL, INTRAVENOUS
     Route: 042
     Dates: end: 20030113
  2. REMICADE [Suspect]
     Indication: CROHN'S DISEASE
     Dosage: 3 MG/KG, 1 IN 1 TOTAL, INTRAVENOUS
     Route: 042
     Dates: start: 20020605
  3. HYTRIN [Concomitant]
  4. PREDNISONE [Concomitant]
  5. PLAQUENIL [Concomitant]
  6. METHOTREXATE [Concomitant]
  7. QUININE SULFATE (QUININE SULFATE) [Concomitant]
  8. IRON (IRON) [Concomitant]
  9. ZOLOFT [Concomitant]
  10. METAMUCIL-2 [Concomitant]
  11. LACTULOSE [Concomitant]
  12. KAOPECTATE (KAOPECTATE) [Concomitant]
  13. ASPIRIN [Concomitant]
  14. CODEINE (CODEINE) [Concomitant]
  15. HYDROCHLOROTHIAZIDE [Concomitant]

REACTIONS (8)
  - BENIGN PROSTATIC HYPERPLASIA [None]
  - BLADDER CANCER [None]
  - HEPATIC CYST [None]
  - METASTASIS [None]
  - NAUSEA [None]
  - OBSTRUCTIVE UROPATHY [None]
  - STRESS SYMPTOMS [None]
  - WEIGHT DECREASED [None]
